FAERS Safety Report 5144695-6 (Version None)
Quarter: 2006Q4

REPORT INFORMATION
  Report Type: 
  Country: None (occurrence: None)
  Receive Date: 20061031
  Receipt Date: 20061016
  Transmission Date: 20070319
  Serious: No
  Sender: FDA-Public Use
  Company Number: 2006PV021944

PATIENT
  Age: 69 Year
  Sex: Female
  Weight: 104.3273 kg

DRUGS (7)
  1. BYETTA [Suspect]
     Indication: DIABETES MELLITUS NON-INSULIN-DEPENDENT
     Dosage: 10 MCG BID SC ; 5 MCG BID SC
     Route: 058
     Dates: start: 20060718, end: 20060801
  2. BYETTA [Suspect]
     Indication: WEIGHT DECREASED
     Dosage: 10 MCG BID SC ; 5 MCG BID SC
     Route: 058
     Dates: start: 20060718, end: 20060801
  3. BYETTA [Suspect]
     Indication: DIABETES MELLITUS NON-INSULIN-DEPENDENT
     Dosage: 10 MCG BID SC ; 5 MCG BID SC
     Route: 058
     Dates: start: 20060807, end: 20060826
  4. BYETTA [Suspect]
     Indication: WEIGHT DECREASED
     Dosage: 10 MCG BID SC ; 5 MCG BID SC
     Route: 058
     Dates: start: 20060807, end: 20060826
  5. BYETTA [Suspect]
     Indication: DIABETES MELLITUS NON-INSULIN-DEPENDENT
     Dosage: 10 MCG BID SC ; 5 MCG BID SC
     Route: 058
     Dates: start: 20061006
  6. BYETTA [Suspect]
     Indication: WEIGHT DECREASED
     Dosage: 10 MCG BID SC ; 5 MCG BID SC
     Route: 058
     Dates: start: 20061006
  7. STARLIX [Concomitant]

REACTIONS (10)
  - CONDITION AGGRAVATED [None]
  - DECREASED APPETITE [None]
  - HYPERTENSION [None]
  - NAUSEA [None]
  - POST PROCEDURAL COMPLICATION [None]
  - POST PROCEDURAL NAUSEA [None]
  - POST PROCEDURAL VOMITING [None]
  - POSTOPERATIVE FEVER [None]
  - PROCEDURAL PAIN [None]
  - WEIGHT DECREASED [None]
